FAERS Safety Report 10017502 (Version 1)
Quarter: 2014Q1

REPORT INFORMATION
  Report Type: Spontaneous
  Country: US (occurrence: None)
  Receive Date: 20140313
  Receipt Date: 20140313
  Transmission Date: 20141002
  Serious: Yes (Other)
  Sender: FDA-Public Use
  Company Number: None

PATIENT
  Age: 71 Year
  Sex: Female
  Weight: 65.77 kg

DRUGS (33)
  1. GABAPENTIN [Suspect]
     Indication: NEUROPATHY PERIPHERAL
     Route: 048
     Dates: start: 20140210, end: 20140222
  2. LISINOPRIL [Concomitant]
  3. MORPHINE [Concomitant]
  4. DEMEROL [Concomitant]
  5. CELEXA [Concomitant]
  6. NEOMYCIN [Concomitant]
  7. CODEINE [Concomitant]
  8. TYLENOL [Concomitant]
  9. VITAMIN D [Concomitant]
  10. B12 [Concomitant]
  11. DOSS [Concomitant]
  12. SENNA [Concomitant]
  13. ALBUTEROL-IPRATROPIUM (DUONEB) [Concomitant]
  14. ALPRAZOLAM (XANAX) [Concomitant]
  15. AMLODIPINE (NORVASC) [Concomitant]
  16. BECLOMETHASONE (QVAR) [Concomitant]
  17. GABAPENTIN (NEURONTIN) [Concomitant]
  18. LATANOPROST (XALATAN) [Concomitant]
  19. LOSARTAN (COZAAR) [Concomitant]
  20. METHOCARBAMOL (ROBAXIN) [Concomitant]
  21. METOCLOPRAMIDE (REGLAN) [Concomitant]
  22. OMEPRAZOLE (PRILOSEC) [Concomitant]
  23. ONDANSETRON (ZOFRAN) [Concomitant]
  24. OXYCODONE-ACETAMINOPHEN (PERCOCET) [Concomitant]
  25. SEREVENT DISKUS [Concomitant]
  26. SIMVASTATIN (ZOCOR) [Concomitant]
  27. VENTOLIN [Concomitant]
  28. WARFARIN (COUMADIN) [Concomitant]
  29. VITAMIN D [Concomitant]
  30. ASA [Concomitant]
  31. CANNABIS [Concomitant]
  32. DOSS [Concomitant]
  33. SENNA [Concomitant]

REACTIONS (5)
  - Neuropathy peripheral [None]
  - Disease recurrence [None]
  - Somnolence [None]
  - Dry mouth [None]
  - Product substitution issue [None]
